FAERS Safety Report 9738998 (Version 1)
Quarter: 2013Q4

REPORT INFORMATION
  Report Type: Spontaneous
  Country: US (occurrence: US)
  Receive Date: 20131209
  Receipt Date: 20131209
  Transmission Date: 20140711
  Serious: Yes (Hospitalization)
  Sender: FDA-Public Use
  Company Number: US-BAYER-2013-148573

PATIENT
  Age: 43 Year
  Sex: Female
  Weight: 64.85 kg

DRUGS (3)
  1. YAZ [Suspect]
     Dosage: UNK
  2. WELLBUTRIN [Concomitant]
     Dosage: 200 MG, BID
  3. AMBIEN [Concomitant]
     Dosage: 12.5 MG, HS

REACTIONS (2)
  - Deep vein thrombosis [None]
  - Pulmonary embolism [None]
